FAERS Safety Report 9765142 (Version 1)
Quarter: 2013Q4

REPORT INFORMATION
  Report Type: Other
  Country: GB (occurrence: GB)
  Receive Date: 20131217
  Receipt Date: 20131217
  Transmission Date: 20140711
  Serious: Yes (Other)
  Sender: FDA-Public Use
  Company Number: GB-TARO PHARMACEUTICALS U.S.A., INC-2013SUN05198

PATIENT
  Age: 83 Year
  Sex: Male

DRUGS (9)
  1. WARFARIN [Suspect]
     Indication: PRODUCT USED FOR UNKNOWN INDICATION
     Route: 048
  2. DIGOXIN [Interacting]
     Indication: PRODUCT USED FOR UNKNOWN INDICATION
     Route: 048
  3. INSPRA [Interacting]
     Indication: HYPERTENSION
     Dosage: UNK
     Route: 048
     Dates: start: 201310, end: 201311
  4. BICALUTAMIDE [Concomitant]
  5. CANDESARTAN [Concomitant]
  6. HYTRIN [Concomitant]
  7. LAXIDO [Concomitant]
  8. NEBIVOLOL [Concomitant]
  9. ZOLADEX [Concomitant]

REACTIONS (3)
  - Drug interaction [Unknown]
  - Vasculitic rash [Not Recovered/Not Resolved]
  - Petechiae [Not Recovered/Not Resolved]
